FAERS Safety Report 7903569-5 (Version None)
Quarter: 2011Q4

REPORT INFORMATION
  Report Type: 
  Country: None (occurrence: None)
  Receive Date: 20111109
  Receipt Date: 20111109
  Transmission Date: 20120403
  Serious: Yes (Life-Threatening)
  Sender: FDA-Public Use
  Company Number: None

PATIENT
  Sex: Female
  Weight: 51 kg

DRUGS (15)
  1. OMEPRAZOLE [Concomitant]
     Route: 048
  2. FLORINEF [Concomitant]
     Route: 048
  3. ATARAX [Concomitant]
     Route: 048
  4. METFORMIN HCL [Concomitant]
     Route: 048
  5. ZOFRAN [Concomitant]
     Route: 048
  6. PLAQUENIL [Concomitant]
     Route: 048
  7. ERYTHROMYCIN [Suspect]
  8. CULTURELLE [Concomitant]
     Route: 048
  9. ELAVIL [Concomitant]
     Route: 048
  10. SINGULAIR [Concomitant]
     Route: 048
  11. NEXIUM [Concomitant]
     Route: 048
  12. ASPIRIN [Concomitant]
     Route: 048
  13. CALCIUM CARBONATE EX- [Concomitant]
     Route: 048
  14. MIRALAX HALF CAPFUL [Concomitant]
     Route: 048
  15. NIFEDIPINE [Concomitant]
     Route: 048

REACTIONS (2)
  - ELECTROCARDIOGRAM ABNORMAL [None]
  - ELECTROCARDIOGRAM QT PROLONGED [None]
